FAERS Safety Report 14234454 (Version 3)
Quarter: 2018Q1

REPORT INFORMATION
  Report Type: Report from Study
  Country: IT (occurrence: IT)
  Receive Date: 20171129
  Receipt Date: 20180111
  Transmission Date: 20180508
  Serious: Yes (Death)
  Sender: FDA-Public Use
  Company Number: IT-ROCHE-2028010

PATIENT
  Age: 51 Year
  Sex: Male
  Weight: 63 kg

DRUGS (3)
  1. OBINUTUZUMAB. [Suspect]
     Active Substance: OBINUTUZUMAB
     Indication: NON-HODGKIN^S LYMPHOMA
     Dosage: ON DAYS 2, 8, AND 15 OF CYCLE 1
     Route: 042
     Dates: start: 20160216, end: 20160229
  2. CC-122 [Suspect]
     Active Substance: INVESTIGATIONAL PRODUCT
     Indication: NON-HODGKIN^S LYMPHOMA
     Dosage: ON DAY 1 FOR 5 CONSECUTIVE DAYS FOLLOWED BY 2 DAYS OFF STUDY DRUG EVERY 7 DAYS (5/7-DAY SCHEDULE) IN
     Route: 048
     Dates: start: 20160215, end: 20160311
  3. CC-122 [Suspect]
     Active Substance: INVESTIGATIONAL PRODUCT
     Dosage: ON DAY 1 FOR 5 CONSECUTIVE DAYS FOLLOWED BY 2 DAYS OFF STUDY DRUG EVERY 7 DAYS (5/7-DAY SCHEDULE) IN
     Route: 048
     Dates: end: 20171116

REACTIONS (1)
  - Acute myeloid leukaemia [Fatal]

NARRATIVE: CASE EVENT DATE: 20171109
